FAERS Safety Report 24418097 (Version 1)
Quarter: 2024Q4

REPORT INFORMATION
  Report Type: Spontaneous
  Country: US (occurrence: US)
  Receive Date: 20241009
  Receipt Date: 20241009
  Transmission Date: 20250115
  Serious: No
  Sender: SUNOVION
  Company Number: US-SMPA-2024SPA003272AA

PATIENT

DRUGS (1)
  1. LATUDA [Suspect]
     Active Substance: LURASIDONE HYDROCHLORIDE
     Indication: Bipolar II disorder
     Dosage: UNK (LITTLE OVER 4 YEARS)
     Route: 048

REACTIONS (6)
  - Splenomegaly [Unknown]
  - Loss of personal independence in daily activities [Unknown]
  - Arthralgia [Recovering/Resolving]
  - Pain in jaw [Recovering/Resolving]
  - Toothache [Recovering/Resolving]
  - Product use in unapproved indication [Unknown]
